FAERS Safety Report 7505694-X (Version None)
Quarter: 2011Q2

REPORT INFORMATION
  Report Type: 
  Country: None (occurrence: None)
  Receive Date: 20110405
  Receipt Date: 20101230
  Transmission Date: 20111010
  Serious: No
  Sender: FDA-Public Use
  Company Number: 2010IP000163

PATIENT
  Age: 71 Year
  Sex: Female

DRUGS (8)
  1. PRIMIDONE [Concomitant]
  2. AMLODIPINE W/BENAZEPRIL HYDROCHLORIDE [Concomitant]
  3. STERILID EYELID CLEANSER [Concomitant]
  4. SYSTANE ULTRA [Concomitant]
  5. SYNTHROID [Concomitant]
  6. BEPREVE [Suspect]
     Indication: BLEPHARITIS
     Dosage: 1 GTT;BID;OPH
     Route: 047
     Dates: start: 20101105
  7. BEPREVE [Suspect]
     Indication: MEIBOMIANITIS
     Dosage: 1 GTT;BID;OPH
     Route: 047
     Dates: start: 20101105
  8. BEPREVE [Suspect]
     Indication: CONJUNCTIVITIS ALLERGIC
     Dosage: 1 GTT;BID;OPH
     Route: 047
     Dates: start: 20101105

REACTIONS (4)
  - HEADACHE [None]
  - OROPHARYNGEAL PAIN [None]
  - NASAL DISCOMFORT [None]
  - DYSGEUSIA [None]
